FAERS Safety Report 9208307 (Version 2)
Quarter: 2013Q2

REPORT INFORMATION
  Report Type: Report from Study
  Country: JP (occurrence: JP)
  Receive Date: 20130403
  Receipt Date: 20130502
  Transmission Date: 20140414
  Serious: Yes (Hospitalization)
  Sender: FDA-Public Use
  Company Number: JP-ALLERGAN-1304651US

PATIENT
  Age: 67 Year
  Sex: Male
  Weight: 47 kg

DRUGS (15)
  1. BOTULINUM TOXIN TYPE A - GENERAL (9060X) [Suspect]
     Indication: MUSCLE SPASMS
     Dosage: 300 UNITS, SINGLE
     Route: 030
     Dates: start: 20121225, end: 20121225
  2. BOTULINUM TOXIN TYPE A - GENERAL (9060X) [Suspect]
     Dosage: 350 UNITS, SINGLE
     Dates: start: 20120918, end: 20120918
  3. BOTULINUM TOXIN TYPE A - GENERAL (9060X) [Suspect]
     Dosage: 100 UNITS, SINGLE
     Dates: start: 20120529, end: 20120529
  4. BOTULINUM TOXIN TYPE A - GENERAL (9060X) [Suspect]
     Dosage: 300 UNITS, SINGLE
     Dates: start: 20120313, end: 20120313
  5. WARFARIN [Suspect]
     Indication: INTRACARDIAC THROMBUS
     Dosage: 5 MG, UNK
     Route: 048
     Dates: start: 2010, end: 20130122
  6. BAYASPIRIN [Concomitant]
     Indication: MYOCARDIAL INFARCTION
     Route: 048
     Dates: start: 2010
  7. ITOROL [Concomitant]
     Indication: MYOCARDIAL INFARCTION
     Route: 048
     Dates: start: 2010
  8. ALDACTONE A [Concomitant]
     Indication: PRODUCT USED FOR UNKNOWN INDICATION
     Dosage: 25 MG, QD
     Route: 048
  9. OMEPRAL [Concomitant]
     Indication: PROPHYLAXIS
     Dosage: 10 MG, QD
     Route: 048
  10. HARNAL D [Concomitant]
     Indication: PRODUCT USED FOR UNKNOWN INDICATION
     Dosage: 0.2 MG, QD
     Route: 048
  11. MAGMITT [Concomitant]
     Indication: PRODUCT USED FOR UNKNOWN INDICATION
     Dosage: 330 MG, QD
     Route: 048
  12. LIPITOR [Concomitant]
     Indication: PRODUCT USED FOR UNKNOWN INDICATION
     Dosage: 10 MG, QD
     Route: 048
  13. NOVORAPID 30 MIX [Concomitant]
     Dosage: 22 UNITS, SINGLE
     Route: 058
  14. NOVORAPID 30 MIX [Concomitant]
     Dosage: 12 UNITS, SINGLE
     Route: 058
  15. BASEN [Suspect]
     Dosage: 0.9 MG, TID

REACTIONS (2)
  - Muscle haemorrhage [Recovered/Resolved]
  - Muscle haemorrhage [None]
